FAERS Safety Report 4558764-2 (Version None)
Quarter: 2005Q1

REPORT INFORMATION
  Report Type: 
  Country: None (occurrence: None)
  Receive Date: 20050121
  Receipt Date: 20040527
  Transmission Date: 20050727
  Serious: Yes (Hospitalization)
  Sender: FDA-Public Use
  Company Number: FR-NOVOPROD-237320

PATIENT
  Age: 31 Year
  Sex: Male
  Weight: 141 kg

DRUGS (18)
  1. NORDITROPIN SIMPLEXX [Suspect]
     Indication: GROWTH HORMONE DEFICIENCY
     Dosage: .4 MG, QD
     Dates: start: 20031101
  2. NORDITROPIN SIMPLEXX [Suspect]
     Dosage: .45 MG, QD
     Dates: start: 20031002, end: 20031101
  3. PROZAC [Concomitant]
     Dosage: 2 TAB, QD
     Route: 048
     Dates: start: 20040409
  4. DEROXAT [Concomitant]
     Dosage: 1 TAB, QD
     Route: 048
     Dates: start: 20031001
  5. DEROXAT [Concomitant]
     Dosage: UNK TAB, QD
     Route: 048
     Dates: start: 20040105, end: 20040409
  6. SERESTA [Concomitant]
     Dosage: 10 MG, QD
     Dates: start: 20030401, end: 20040409
  7. SERESTA [Concomitant]
     Dosage: 70 MG, QD
     Dates: start: 20040409
  8. ZOLPIDEM TARTRATE [Concomitant]
     Dosage: 1 TAB, QD
     Route: 048
  9. HYDROCORTISONE [Concomitant]
     Dosage: 20 MG, QD
  10. LEVOTHYROX [Concomitant]
     Dosage: 125 UG, UNK
     Dates: end: 20040409
  11. LEVOTHYROX [Concomitant]
     Dosage: 150 UG, QD
     Dates: start: 20040409
  12. MINIRIN ^AVENTIS PHARMA^ [Concomitant]
     Route: 055
     Dates: start: 20040409
  13. ANDROTARDYL [Concomitant]
     Dosage: 75 MG, QD
  14. DIFFU K [Concomitant]
     Dosage: 1 TAB, QD
     Route: 048
     Dates: start: 20040409
  15. OMEPRAZOLE [Concomitant]
     Dosage: 1 TAB, QD
     Dates: start: 20040409
  16. DAFALGAN [Concomitant]
     Dosage: 3 TAB, QD
     Dates: start: 20040409
  17. AUGMENTIN '125' [Concomitant]
     Dosage: 2000 MG, QD
     Dates: start: 20040409
  18. BRONCHOKOD [Concomitant]
     Dates: start: 20040409

REACTIONS (2)
  - CONDITION AGGRAVATED [None]
  - DEPRESSION [None]
